FAERS Safety Report 8452600-X (Version None)
Quarter: 2012Q2

REPORT INFORMATION
  Report Type: 
  Country: None (occurrence: None)
  Receive Date: 20120620
  Receipt Date: 20120419
  Transmission Date: 20120825
  Serious: No
  Sender: FDA-Public Use
  Company Number: US-VERTEX PHARMACEUTICALS INC.-AE-2012-005662

PATIENT
  Sex: Female
  Weight: 56.75 kg

DRUGS (4)
  1. INCIVEK [Suspect]
     Indication: HEPATITIS C
     Route: 048
     Dates: start: 20120416
  2. PEGASYS [Concomitant]
     Indication: HEPATITIS C
     Route: 058
     Dates: start: 20120416
  3. COPEGUS [Concomitant]
     Indication: HEPATITIS C
     Dates: start: 20120416
  4. NAPROXEN (ALEVE) [Concomitant]
     Indication: DISCOMFORT
     Route: 048

REACTIONS (4)
  - HEADACHE [None]
  - RASH PRURITIC [None]
  - PAIN [None]
  - FATIGUE [None]
